FAERS Safety Report 8806304 (Version 1)
Quarter: 2012Q4

REPORT INFORMATION
  Report Type: 
  Country: US (occurrence: US)
  Receive Date: 20120925
  Receipt Date: 20120925
  Transmission Date: 20130627
  Serious: No
  Sender: FDA-Public Use
  Company Number: US-BAYER-2012-082795

PATIENT
  Sex: Male

DRUGS (1)
  1. LEVITRA [Suspect]
     Indication: EJACULATION DISORDER
     Dosage: 5 mg, ONCE
     Route: 048
     Dates: start: 201208, end: 20120814

REACTIONS (6)
  - Ejaculation disorder [None]
  - Erectile dysfunction [None]
  - Penis disorder [None]
  - Ejaculation disorder [None]
  - Ejaculation disorder [None]
  - Ejaculation failure [None]
